FAERS Safety Report 5099954-2 (Version None)
Quarter: 2006Q3

REPORT INFORMATION
  Report Type: 
  Country: None (occurrence: None)
  Receive Date: 20060908
  Receipt Date: 20060818
  Transmission Date: 20061208
  Serious: Yes (Hospitalization)
  Sender: FDA-Public Use
  Company Number: GBWYE738718AUG06

PATIENT
  Sex: Female
  Weight: 55 kg

DRUGS (6)
  1. ENBREL [Suspect]
     Indication: RHEUMATOID ARTHRITIS
     Route: 058
     Dates: start: 20040715
  2. DIDRONEL [Concomitant]
     Dosage: UNKNOWN
  3. DICLOFENAC [Concomitant]
     Dosage: UNKNOWN
     Route: 065
  4. FOLIC ACID [Concomitant]
     Dosage: UNKNOWN
     Route: 065
  5. PREDNISOLONE [Concomitant]
     Dosage: UNKNOWN
     Route: 065
  6. CODEINE [Concomitant]
     Dosage: UNKNOWN
     Route: 065

REACTIONS (3)
  - CEREBRAL ISCHAEMIA [None]
  - DEMYELINATION [None]
  - NEUROLOGICAL SYMPTOM [None]
